FAERS Safety Report 10420252 (Version 1)
Quarter: 2014Q3

REPORT INFORMATION
  Report Type: Report from Study
  Country: US (occurrence: None)
  Receive Date: 20140804
  Receipt Date: 20140804
  Transmission Date: 20150326
  Serious: Yes (Life-Threatening, Hospitalization)
  Sender: FDA-Public Use
  Company Number: 2013US008730

PATIENT
  Age: 74 Year
  Sex: Female
  Weight: 61.2 kg

DRUGS (12)
  1. MAXZIDE (HYDROCHLOROTHIAZIDE, TRIAMTERENE) [Concomitant]
  2. NAPROXEN. [Concomitant]
     Active Substance: NAPROXEN
  3. LIDODERM [Concomitant]
     Active Substance: LIDOCAINE
  4. TRAMADOL [Concomitant]
     Active Substance: TRAMADOL
  5. VITAMIN D?/00107901/ (ERGOCALCIFEROL) [Concomitant]
  6. GLASSIA [Suspect]
     Active Substance: .ALPHA.1-PROTEINASE INHIBITOR HUMAN
     Indication: ALPHA-1 ANTI-TRYPSIN DEFICIENCY
     Route: 042
     Dates: start: 201104
  7. ROBAXIN (METHOCARBAMOL) [Concomitant]
  8. WELLBUTRIN [Concomitant]
     Active Substance: BUPROPION HYDROCHLORIDE
  9. PROVENTIL?/00139501/ (SALBUTAMOL) [Concomitant]
  10. ASPIRIN (ACETYLSALICYLIC-ACID) [Concomitant]
  11. FLONASE [Concomitant]
     Active Substance: FLUTICASONE PROPIONATE
  12. ALBUTEROL?/00139501/ (SALBUTAMOL) [Concomitant]

REACTIONS (3)
  - Pulmonary mass [None]
  - Cerebrovascular accident [None]
  - Pneumothorax [None]
